FAERS Safety Report 5406896-9 (Version None)
Quarter: 2007Q3

REPORT INFORMATION
  Report Type: 
  Country: None (occurrence: None)
  Receive Date: 20070802
  Receipt Date: 20070724
  Transmission Date: 20080115
  Serious: Yes (Other)
  Sender: FDA-Public Use
  Company Number: 028-21880-07071339

PATIENT
  Age: 77 Year
  Sex: Male
  Weight: 68.8 kg

DRUGS (10)
  1. REVLIMID [Suspect]
     Indication: DRUG USE FOR UNKNOWN INDICATION
     Dosage: 10 MG, OD DAYS 1-21, ORAL
     Route: 048
     Dates: start: 20070619, end: 20070709
  2. MELPHALAN (MELPHALAN) [Suspect]
     Indication: DRUG USE FOR UNKNOWN INDICATION
     Dosage: 8 MG, OD DAYS 1-4, ORAL
     Route: 048
     Dates: start: 20070609, end: 20070622
  3. ASA (ACETYSALICYLIC ACID) [Concomitant]
  4. LEVOTHYROXINE SODIUM [Concomitant]
  5. TRIAZIDE (TRICHLORMETHIAZIDE) [Concomitant]
  6. ADALAT CC [Concomitant]
  7. CRESTOR [Concomitant]
  8. HYCODAN (HYDROCODONE BITARTRATE) (1 MILLIGRAM/MILLILITERS) [Concomitant]
  9. SENOKOT [Concomitant]
  10. COLACE (DOCUSATE SODIUM) [Concomitant]

REACTIONS (3)
  - CRANIAL NEUROPATHY [None]
  - IIIRD NERVE PARALYSIS [None]
  - VITH NERVE PARALYSIS [None]
